FAERS Safety Report 9982146 (Version 2)
Quarter: 2014Q1

REPORT INFORMATION
  Report Type: Report from Study
  Country: US (occurrence: US)
  Receive Date: 20140307
  Receipt Date: 20140307
  Transmission Date: 20141002
  Serious: Yes (Other)
  Sender: FDA-Public Use
  Company Number: US-ABBVIE-13P-163-1156688-00

PATIENT
  Sex: Female
  Weight: 103.51 kg

DRUGS (15)
  1. HUMIRA [Suspect]
     Indication: PSORIASIS
     Route: 058
     Dates: start: 2006, end: 2012
  2. HUMIRA [Suspect]
     Indication: PSORIATIC ARTHROPATHY
     Dates: end: 201206
  3. HUMIRA [Suspect]
     Dates: end: 201303
  4. HUMIRA [Suspect]
  5. SYNTHROID [Concomitant]
     Indication: HYPOTHYROIDISM
  6. METOPROLOL [Concomitant]
     Indication: BLOOD PRESSURE
  7. HYZAAR [Concomitant]
     Indication: BLOOD PRESSURE
  8. DEXILANT [Concomitant]
     Indication: PRODUCT USED FOR UNKNOWN INDICATION
  9. FOLIC ACID [Concomitant]
     Indication: VITAMIN SUPPLEMENTATION
  10. CLONIDINE [Concomitant]
     Indication: BLOOD PRESSURE
  11. NEURONTIN [Concomitant]
     Indication: PARAESTHESIA
  12. PREMARIN [Concomitant]
     Indication: HORMONE REPLACEMENT THERAPY
  13. ALLEGRA [Concomitant]
     Indication: SINUSITIS
  14. TYLENOL WITH CODEIN #3 [Concomitant]
     Indication: PAIN
  15. LIVALO [Concomitant]
     Indication: BLOOD CHOLESTEROL INCREASED

REACTIONS (5)
  - Sinusitis [Recovered/Resolved]
  - Cough [Not Recovered/Not Resolved]
  - Pneumonia [Recovered/Resolved]
  - Psoriasis [Recovered/Resolved]
  - Influenza [Recovered/Resolved]
